FAERS Safety Report 23907556 (Version 2)
Quarter: 2025Q2

REPORT INFORMATION
  Report Type: Report from Study
  Country: IT (occurrence: IT)
  Receive Date: 20240528
  Receipt Date: 20250501
  Transmission Date: 20250716
  Serious: Yes (Other)
  Sender: AUROBINDO
  Company Number: IT-TAKEDA-2024TUS046632

PATIENT

DRUGS (2)
  1. BENDAMUSTINE [Suspect]
     Active Substance: BENDAMUSTINE
     Indication: Hodgkin^s disease refractory
     Route: 065
  2. BRENTUXIMAB VEDOTIN [Suspect]
     Active Substance: BRENTUXIMAB VEDOTIN
     Indication: Hodgkin^s disease refractory
     Route: 065

REACTIONS (1)
  - Cytomegalovirus infection reactivation [Unknown]
